FAERS Safety Report 4469237-X (Version None)
Quarter: 2004Q4

REPORT INFORMATION
  Report Type: 
  Country: None (occurrence: None)
  Receive Date: 20041005
  Receipt Date: 20040922
  Transmission Date: 20050328
  Serious: Yes (Congenital Anomaly)
  Sender: FDA-Public Use
  Company Number: 2004S1000156

PATIENT
  Sex: 0

DRUGS (1)
  1. ACITRETIN   (ACITRETIN) [Suspect]
     Indication: PSORIASIS
     Dosage: 20 MG; QD; ORAL
     Route: 048
     Dates: start: 20020619

REACTIONS (5)
  - ABORTION INDUCED [None]
  - CONGENITAL ANOMALY [None]
  - PREGNANCY OF PARTNER [None]
  - TRANSMISSION OF DRUG VIA SEMEN [None]
  - TRISOMY 21 [None]
